FAERS Safety Report 12890263 (Version 2)
Quarter: 2017Q1

REPORT INFORMATION
  Report Type: Spontaneous
  Country: AR (occurrence: AR)
  Receive Date: 20161027
  Receipt Date: 20170316
  Transmission Date: 20170428
  Serious: Yes (Congenital Anomaly)
  Sender: FDA-Public Use
  Company Number: AR-ACTELION-A-NJ2016-144506

PATIENT
  Age: 0 Day
  Sex: Female
  Weight: 1.6 kg

DRUGS (1)
  1. VENTAVIS [Suspect]
     Active Substance: ILOPROST
     Indication: PRODUCT USED FOR UNKNOWN INDICATION
     Dosage: UNK
     Route: 064
     Dates: start: 20160915

REACTIONS (4)
  - Premature baby [Recovered/Resolved]
  - Low birth weight baby [Recovered/Resolved]
  - Foetal exposure timing unspecified [Unknown]
  - Hypertension neonatal [Recovered/Resolved]

NARRATIVE: CASE EVENT DATE: 20161014
